FAERS Safety Report 9200422 (Version 2)
Quarter: 2013Q3

REPORT INFORMATION
  Report Type: Spontaneous
  Country: BE (occurrence: BE)
  Receive Date: 20130329
  Receipt Date: 20130923
  Transmission Date: 20140515
  Serious: Yes (Hospitalization)
  Sender: FDA-Public Use
  Company Number: BE-B.I. PHARMACEUTICALS,INC./RIDGEFIELD-2013-BL-00147BL

PATIENT
  Age: 68 Year
  Sex: Male
  Weight: 95 kg

DRUGS (8)
  1. PRADAXA [Suspect]
     Indication: ATRIAL FIBRILLATION
     Dosage: 300 MG
     Route: 048
     Dates: start: 20121112
  2. PRADAXA [Suspect]
     Indication: CEREBROVASCULAR ACCIDENT PROPHYLAXIS
     Dosage: 300 MG
     Route: 048
     Dates: start: 201212
  3. SOTALEX [Concomitant]
     Dosage: 1/4 TABLET TWICE A DAY
     Route: 048
  4. GLUCOPHAGE [Concomitant]
     Dosage: 1700 MG
     Route: 048
  5. LOORTAN [Concomitant]
     Dosage: 100 MG
     Route: 048
  6. APOCARD [Concomitant]
     Dosage: 100 MG
     Route: 048
  7. LIPANTHYL NANO [Concomitant]
     Route: 048
  8. ZYLORIC [Concomitant]
     Route: 048

REACTIONS (2)
  - Epilepsy [Not Recovered/Not Resolved]
  - Grand mal convulsion [Recovered/Resolved]
